FAERS Safety Report 10082640 (Version 2)
Quarter: 2014Q2

REPORT INFORMATION
  Report Type: Spontaneous
  Country: US (occurrence: US)
  Receive Date: 20140416
  Receipt Date: 20140508
  Transmission Date: 20141212
  Serious: No
  Sender: FDA-Public Use
  Company Number: US-009507513-1403USA013601

PATIENT
  Age: 78 Year
  Sex: Female
  Weight: 89.8 kg

DRUGS (1)
  1. OXYTROL FOR WOMEN [Suspect]
     Indication: INCONTINENCE
     Dosage: 1 DF, Q4D
     Route: 062
     Dates: start: 201403

REACTIONS (2)
  - Nightmare [Recovered/Resolved]
  - Sleep disorder [Recovered/Resolved]
